FAERS Safety Report 5066829-4 (Version None)
Quarter: 2006Q3

REPORT INFORMATION
  Report Type: 
  Country: None (occurrence: None)
  Receive Date: 20060801
  Receipt Date: 20060622
  Transmission Date: 20061208
  Serious: Yes (Hospitalization, Other)
  Sender: FDA-Public Use
  Company Number: FR-ABBOTT-06P-056-0336693-00

PATIENT
  Age: 35 Year
  Sex: Male

DRUGS (12)
  1. DEPAKENE [Suspect]
     Indication: EPILEPSY
     Route: 048
     Dates: start: 20030101, end: 20060512
  2. TRANXENE [Suspect]
     Indication: DRUG USE FOR UNKNOWN INDICATION
     Route: 065
     Dates: end: 20060512
  3. METRONIDAZOLE [Suspect]
     Indication: FEBRILE INFECTION
     Route: 048
     Dates: start: 20060507, end: 20060512
  4. ROXITHROMYCIN [Suspect]
     Indication: DRUG USE FOR UNKNOWN INDICATION
     Route: 048
     Dates: start: 20060507, end: 20060512
  5. HEPARIN-FRACTION, SODIUM SALT [Suspect]
     Indication: DRUG USE FOR UNKNOWN INDICATION
     Route: 058
     Dates: start: 20060101, end: 20060512
  6. SETRALINE HCL [Suspect]
     Indication: DEPRESSION
     Route: 048
     Dates: start: 20040101, end: 20060512
  7. OLANZAPINE [Suspect]
     Indication: MENTAL DISORDER
     Route: 048
     Dates: start: 20040101, end: 20060512
  8. OLANZAPINE [Suspect]
     Indication: ABNORMAL BEHAVIOUR
  9. BACLOFEN [Suspect]
     Indication: DRUG USE FOR UNKNOWN INDICATION
     Route: 065
     Dates: end: 20060512
  10. POTASSIUM CHLORIDE [Suspect]
     Indication: DRUG USE FOR UNKNOWN INDICATION
     Route: 048
     Dates: start: 20060101, end: 20060512
  11. DOMPERIDONE [Suspect]
     Indication: DRUG USE FOR UNKNOWN INDICATION
     Route: 048
     Dates: end: 20060512
  12. NADROPARINE [Concomitant]
     Indication: DRUG USE FOR UNKNOWN INDICATION
     Dates: start: 20060101

REACTIONS (6)
  - HYPERHIDROSIS [None]
  - HYPOTENSION [None]
  - PANCREATITIS ACUTE [None]
  - SEPSIS [None]
  - SPLENIC NECROSIS [None]
  - TACHYCARDIA [None]
